FAERS Safety Report 7908387-X (Version None)
Quarter: 2011Q4

REPORT INFORMATION
  Report Type: 
  Country: None (occurrence: None)
  Receive Date: 20111111
  Receipt Date: 20111104
  Transmission Date: 20120403
  Serious: Yes (Hospitalization, Other)
  Sender: FDA-Public Use
  Company Number: US-JNJFOC-20090709034

PATIENT
  Sex: Male
  Weight: 95 kg

DRUGS (27)
  1. DOXORUBICIN HCL [Suspect]
     Indication: DIFFUSE LARGE B-CELL LYMPHOMA
     Route: 042
     Dates: end: 20090723
  2. DOXORUBICIN HCL [Suspect]
     Route: 042
  3. LORAZEPAM [Concomitant]
     Indication: NAUSEA
     Route: 065
     Dates: start: 20090720
  4. RITUXAN [Suspect]
     Route: 042
  5. PRILOSEC [Concomitant]
     Indication: NAUSEA
     Route: 065
  6. DOXORUBICIN HCL [Suspect]
     Route: 042
  7. VELCADE [Suspect]
     Indication: DIFFUSE LARGE B-CELL LYMPHOMA
     Route: 042
     Dates: start: 20090622
  8. VELCADE [Suspect]
     Route: 042
  9. RITUXAN [Suspect]
     Route: 042
  10. VELCADE [Suspect]
     Route: 042
     Dates: start: 20090622, end: 20090723
  11. RITUXAN [Suspect]
     Indication: DIFFUSE LARGE B-CELL LYMPHOMA
     Route: 042
  12. RITUXAN [Suspect]
     Route: 042
  13. RITUXAN [Suspect]
     Route: 042
     Dates: start: 20090629, end: 20090723
  14. ALOXI [Concomitant]
     Indication: NAUSEA
     Route: 042
     Dates: start: 20090720
  15. ATIVAN [Concomitant]
     Indication: NAUSEA
     Route: 065
  16. DOXORUBICIN HCL [Suspect]
     Dosage: IN 250 ML OF 5 % DEXTROSE; ON DAY 11 EVERY 21 DAYS (TREATMENT PLANNED FOR 6 CYCLES)
     Route: 042
  17. VELCADE [Suspect]
     Route: 042
     Dates: end: 20091020
  18. VELCADE [Suspect]
     Route: 042
  19. LORAZEPAM [Concomitant]
     Indication: VOMITING
     Route: 065
     Dates: start: 20090720
  20. SODIUM CHLORIDE [Concomitant]
     Indication: VOMITING
     Route: 065
  21. RITUXAN [Suspect]
     Route: 042
  22. IMODIUM [Concomitant]
     Indication: DIARRHOEA
     Route: 048
     Dates: start: 20090721
  23. ALOXI [Concomitant]
     Indication: PREMEDICATION
     Route: 042
     Dates: start: 20090720
  24. DOXORUBICIN HCL [Suspect]
     Route: 042
     Dates: start: 20090702
  25. VELCADE [Suspect]
     Route: 042
  26. LOMOTIL [Concomitant]
     Indication: DIARRHOEA
     Route: 048
     Dates: start: 20090728
  27. ZOFRAN [Concomitant]
     Indication: NAUSEA
     Route: 065

REACTIONS (5)
  - DECREASED APPETITE [None]
  - ACUTE PRERENAL FAILURE [None]
  - VOMITING [None]
  - DIARRHOEA [None]
  - FATIGUE [None]
